FAERS Safety Report 9793273 (Version 3)
Quarter: 2014Q1

REPORT INFORMATION
  Report Type: Spontaneous
  Country: IL (occurrence: IL)
  Receive Date: 20140102
  Receipt Date: 20140110
  Transmission Date: 20141002
  Serious: Yes (Death)
  Sender: FDA-Public Use
  Company Number: IL-ASTRAZENECA-2013SE94630

PATIENT
  Age: 7051 Day
  Sex: Male

DRUGS (6)
  1. SEROQUEL [Suspect]
     Indication: RESTLESSNESS
     Route: 048
     Dates: start: 201305, end: 20131112
  2. SEROQUEL [Suspect]
     Indication: ANXIETY
     Route: 048
     Dates: start: 201305, end: 20131112
  3. SEROQUEL [Suspect]
     Indication: RESTLESSNESS
     Route: 048
     Dates: start: 20131113
  4. SEROQUEL [Suspect]
     Indication: ANXIETY
     Route: 048
     Dates: start: 20131113
  5. DEPALEPT [Concomitant]
     Indication: EPILEPSY
     Route: 048
     Dates: start: 2008
  6. TOPAMAX [Concomitant]
     Indication: EPILEPSY
     Route: 048
     Dates: start: 2008

REACTIONS (2)
  - Epilepsy [Fatal]
  - Off label use [Unknown]
